FAERS Safety Report 19553140 (Version 2)
Quarter: 2022Q2

REPORT INFORMATION
  Report Type: Spontaneous
  Country: US (occurrence: US)
  Receive Date: 20210714
  Receipt Date: 20220616
  Transmission Date: 20220720
  Serious: No
  Sender: FDA-Public Use
  Company Number: US-SA-SAC20210712000339

PATIENT
  Age: 48 Year
  Sex: Female

DRUGS (2)
  1. KEVZARA [Suspect]
     Active Substance: SARILUMAB
     Indication: Rheumatoid arthritis
     Dosage: 200 MG, QOW
     Route: 058
     Dates: start: 202104
  2. CIMZIA [Concomitant]
     Active Substance: CERTOLIZUMAB PEGOL
     Dosage: CIMZIA FREQUENCY: INJECT 2 SYRINGES SUBCUTANEOUSLY AT WEEKS 0, 2 AND 4
     Route: 058

REACTIONS (3)
  - Arthralgia [Unknown]
  - Joint swelling [Unknown]
  - Injection site rash [Unknown]

NARRATIVE: CASE EVENT DATE: 20210101
